FAERS Safety Report 14100317 (Version 1)
Quarter: 2017Q4

REPORT INFORMATION
  Report Type: Spontaneous
  Country: US (occurrence: US)
  Receive Date: 20171017
  Receipt Date: 20171017
  Transmission Date: 20180321
  Serious: No
  Sender: FDA-Public Use
  Company Number: US-GILEAD-2017-0299245

PATIENT
  Sex: Male

DRUGS (2)
  1. RANOLAZINE. [Suspect]
     Active Substance: RANOLAZINE
     Indication: CORONARY ARTERY DISEASE
  2. RANOLAZINE. [Suspect]
     Active Substance: RANOLAZINE
     Indication: ANGINA PECTORIS
     Dosage: 500 MG, UNK
     Route: 065

REACTIONS (2)
  - Ataxia [Recovered/Resolved]
  - Dizziness [Recovered/Resolved]
